FAERS Safety Report 7916074-7 (Version None)
Quarter: 2011Q4

REPORT INFORMATION
  Report Type: 
  Country: None (occurrence: None)
  Receive Date: 20111115
  Receipt Date: 20090824
  Transmission Date: 20120403
  Serious: Yes (Other)
  Sender: FDA-Public Use
  Company Number: PHHY2009TW60976

PATIENT
  Sex: Male

DRUGS (2)
  1. GLEEVEC [Suspect]
     Dosage: 600 MG, UNK
  2. GLEEVEC [Suspect]
     Indication: GASTROINTESTINAL STROMAL TUMOUR
     Dosage: 400 MG, UNK
     Route: 048
     Dates: start: 20090804

REACTIONS (13)
  - DYSPEPSIA [None]
  - INFERTILITY [None]
  - EMOTIONAL DISORDER [None]
  - SKIN DEPIGMENTATION [None]
  - PLEURITIC PAIN [None]
  - DEPRESSION [None]
  - CHEST PAIN [None]
  - INJURY [None]
  - FACE OEDEMA [None]
  - OEDEMA [None]
  - LIVER DISORDER [None]
  - SKIN FRAGILITY [None]
  - OEDEMA PERIPHERAL [None]
